FAERS Safety Report 6640055-7 (Version None)
Quarter: 2010Q1

REPORT INFORMATION
  Report Type: 
  Country: None (occurrence: None)
  Receive Date: 20100318
  Receipt Date: 20100305
  Transmission Date: 20100710
  Serious: No
  Sender: FDA-Public Use
  Company Number: FR-ELI_LILLY_AND_COMPANY-FR201003001609

PATIENT
  Sex: Male

DRUGS (1)
  1. ZYPREXA [Suspect]

REACTIONS (1)
  - LEUKOPENIA [None]
